FAERS Safety Report 18883984 (Version 4)
Quarter: 2023Q4

REPORT INFORMATION
  Report Type: Spontaneous
  Country: US (occurrence: US)
  Receive Date: 20210211
  Receipt Date: 20231002
  Transmission Date: 20240110
  Serious: Yes (Other)
  Sender: FDA-Public Use
  Company Number: US-GILEAD-2021-0515564

PATIENT
  Age: 53 Year
  Sex: Female
  Weight: 72.12 kg

DRUGS (21)
  1. ATRIPLA [Suspect]
     Active Substance: EFAVIRENZ\EMTRICITABINE\TENOFOVIR DISOPROXIL FUMARATE
     Indication: HIV infection
     Dosage: UNK
     Route: 048
     Dates: start: 200701, end: 201109
  2. TRUVADA [Suspect]
     Active Substance: EMTRICITABINE\TENOFOVIR DISOPROXIL FUMARATE
     Indication: HIV infection
     Dosage: UNK
     Route: 048
     Dates: start: 2007
  3. TRUVADA [Suspect]
     Active Substance: EMTRICITABINE\TENOFOVIR DISOPROXIL FUMARATE
     Dosage: UNK
     Route: 048
     Dates: start: 20051122, end: 2007
  4. IBUPROFEN SODIUM [Concomitant]
     Active Substance: IBUPROFEN SODIUM
  5. FENOFIBRATE [Concomitant]
     Active Substance: FENOFIBRATE
  6. LISINOPRIL [Concomitant]
     Active Substance: LISINOPRIL
  7. SUSTIVA [Concomitant]
     Active Substance: EFAVIRENZ
  8. TRIUMEQ [Concomitant]
     Active Substance: ABACAVIR SULFATE\DOLUTEGRAVIR SODIUM\LAMIVUDINE
  9. AMLODIPINE [Concomitant]
     Active Substance: AMLODIPINE BESYLATE
  10. CHANTIX [Concomitant]
     Active Substance: VARENICLINE TARTRATE
  11. TEMOVATE [Concomitant]
     Active Substance: CLOBETASOL PROPIONATE
  12. FLUCONAZOLE [Concomitant]
     Active Substance: FLUCONAZOLE
  13. TERCONAZOLE [Concomitant]
     Active Substance: TERCONAZOLE
  14. TOCOPHEROL [Concomitant]
     Active Substance: TOCOPHEROL
  15. BIOTIN [Concomitant]
     Active Substance: BIOTIN
  16. VITAMINS [Concomitant]
     Active Substance: VITAMINS
  17. MOBIC [Concomitant]
     Active Substance: MELOXICAM
  18. BUPRENORPHINE [Concomitant]
     Active Substance: BUPRENORPHINE
  19. TERAZOL [TERCONAZOLE] [Concomitant]
  20. VALTREX [Concomitant]
     Active Substance: VALACYCLOVIR HYDROCHLORIDE
  21. LIDOCAINE [Concomitant]
     Active Substance: LIDOCAINE

REACTIONS (10)
  - Chronic kidney disease [Not Recovered/Not Resolved]
  - Chronic kidney disease [Not Recovered/Not Resolved]
  - Renal impairment [Not Recovered/Not Resolved]
  - Osteopenia [Not Recovered/Not Resolved]
  - Emotional distress [Not Recovered/Not Resolved]
  - Anhedonia [Not Recovered/Not Resolved]
  - Bone density decreased [Unknown]
  - Anxiety [Not Recovered/Not Resolved]
  - Pain [Not Recovered/Not Resolved]
  - Blood creatinine increased [Not Recovered/Not Resolved]

NARRATIVE: CASE EVENT DATE: 20120701
